FAERS Safety Report 5038760-1 (Version None)
Quarter: 2006Q2

REPORT INFORMATION
  Report Type: 
  Country: None (occurrence: None)
  Receive Date: 20060601
  Receipt Date: 20060315
  Transmission Date: 20061013
  Serious: No
  Sender: FDA-Public Use
  Company Number: 2005P003448

PATIENT
  Age: 57 Year
  Sex: Male
  Weight: 145.151 kg

DRUGS (5)
  1. BYETTA [Suspect]
     Indication: DIABETES MELLITUS NON-INSULIN-DEPENDENT
     Dosage: SEE IMAGE
     Route: 058
     Dates: start: 20050801, end: 20050901
  2. BYETTA [Suspect]
     Indication: DIABETES MELLITUS NON-INSULIN-DEPENDENT
     Dosage: SEE IMAGE
     Route: 058
     Dates: start: 20050901, end: 20060301
  3. AMARYL [Concomitant]
  4. NOVOLOG SSI [Concomitant]
  5. ACTOS /USA/ [Concomitant]

REACTIONS (10)
  - BLOOD GLUCOSE INCREASED [None]
  - DECREASED APPETITE [None]
  - DIARRHOEA [None]
  - ERUCTATION [None]
  - GLYCOSYLATED HAEMOGLOBIN INCREASED [None]
  - MEDICATION RESIDUE [None]
  - NAUSEA [None]
  - POST GASTRIC SURGERY SYNDROME [None]
  - STOOL ANALYSIS ABNORMAL [None]
  - WEIGHT INCREASED [None]
